FAERS Safety Report 16305871 (Version 3)
Quarter: 2020Q4

REPORT INFORMATION
  Report Type: Spontaneous
  Country: US (occurrence: US)
  Receive Date: 20190513
  Receipt Date: 20201229
  Transmission Date: 20210113
  Serious: Yes (Other)
  Sender: FDA-Public Use
  Company Number: US-ASTRAZENECA-2019SE63753

PATIENT
  Age: 21506 Day
  Sex: Female
  Weight: 89.8 kg

DRUGS (37)
  1. NEXIUM [Suspect]
     Active Substance: ESOMEPRAZOLE MAGNESIUM
     Indication: GASTROOESOPHAGEAL REFLUX DISEASE
     Dosage: GENERIC
     Route: 065
     Dates: start: 201701, end: 201708
  2. DILTAZEM [Concomitant]
  3. POTASSIUM CHLORIDE. [Concomitant]
     Active Substance: POTASSIUM CHLORIDE
     Indication: BLOOD POTASSIUM DECREASED
     Dates: start: 201707
  4. MORPHINE [Concomitant]
     Active Substance: MORPHINE
  5. AZITHROMYCIN ANHYDROUS. [Concomitant]
     Active Substance: AZITHROMYCIN ANHYDROUS
  6. ZANTAC 150 (RANITIDINE HYDROCHLORIDE) [Concomitant]
     Active Substance: RANITIDINE HYDROCHLORIDE
     Dates: start: 2018
  7. CYMBALTA [Concomitant]
     Active Substance: DULOXETINE HYDROCHLORIDE
  8. ROBAXIN [Concomitant]
     Active Substance: METHOCARBAMOL
  9. PROVENTIL [Concomitant]
     Active Substance: ALBUTEROL
  10. NEXIUM [Suspect]
     Active Substance: ESOMEPRAZOLE MAGNESIUM
     Indication: GASTROOESOPHAGEAL REFLUX DISEASE
     Route: 048
     Dates: start: 201001, end: 201701
  11. LINZESS [Concomitant]
     Active Substance: LINACLOTIDE
  12. COREG [Concomitant]
     Active Substance: CARVEDILOL
  13. ADVAIR HFA [Concomitant]
     Active Substance: FLUTICASONE PROPIONATE\SALMETEROL XINAFOATE
  14. NEXIUM [Suspect]
     Active Substance: ESOMEPRAZOLE MAGNESIUM
     Indication: GASTROOESOPHAGEAL REFLUX DISEASE
     Route: 048
     Dates: start: 201112, end: 201710
  15. LORATADINE. [Concomitant]
     Active Substance: LORATADINE
     Indication: DRUG HYPERSENSITIVITY
     Dates: start: 200905
  16. FUROSEMIDE. [Concomitant]
     Active Substance: FUROSEMIDE
     Indication: FLUID RETENTION
     Dates: start: 201707, end: 201801
  17. FLUTICASONE. [Concomitant]
     Active Substance: FLUTICASONE
  18. HYDROCHLOROTHIAZIDE. [Concomitant]
     Active Substance: HYDROCHLOROTHIAZIDE
  19. NASONEX [Concomitant]
     Active Substance: MOMETASONE FUROATE
  20. TRAMADOL. [Concomitant]
     Active Substance: TRAMADOL
  21. EPIPEN [Concomitant]
     Active Substance: EPINEPHRINE
  22. CLONIDINE. [Concomitant]
     Active Substance: CLONIDINE
     Indication: HYPERTENSION
     Dates: start: 200903, end: 201401
  23. GABAPENTIN. [Concomitant]
     Active Substance: GABAPENTIN
  24. PRILOSEC [Suspect]
     Active Substance: OMEPRAZOLE MAGNESIUM
     Indication: GASTROOESOPHAGEAL REFLUX DISEASE
     Route: 048
     Dates: start: 201001, end: 201701
  25. ZANTAC 150 (RANITIDINE HYDROCHLORIDE) [Concomitant]
     Active Substance: RANITIDINE HYDROCHLORIDE
     Dates: start: 2018
  26. DIAZEPAM. [Concomitant]
     Active Substance: DIAZEPAM
  27. PROAIR HFA [Concomitant]
     Active Substance: ALBUTEROL SULFATE
  28. FOSINOPRIL [Concomitant]
     Active Substance: FOSINOPRIL
  29. PRILOSEC [Suspect]
     Active Substance: OMEPRAZOLE MAGNESIUM
     Indication: GASTROOESOPHAGEAL REFLUX DISEASE
     Dosage: GENERIC
     Route: 065
     Dates: start: 200906, end: 201609
  30. LISINOPRIL. [Concomitant]
     Active Substance: LISINOPRIL
     Indication: HYPERTENSION
     Dates: start: 201404, end: 201711
  31. ASPIRIN. [Concomitant]
     Active Substance: ASPIRIN
  32. TIZANIDINE. [Concomitant]
     Active Substance: TIZANIDINE
  33. TORSEMIDE. [Concomitant]
     Active Substance: TORSEMIDE
  34. AMLODIPINE [Concomitant]
     Active Substance: AMLODIPINE BESYLATE
  35. NAPROXEN. [Concomitant]
     Active Substance: NAPROXEN
  36. PREDNISONE. [Concomitant]
     Active Substance: PREDNISONE
  37. AMITIZA [Concomitant]
     Active Substance: LUBIPROSTONE

REACTIONS (2)
  - Nephrogenic anaemia [Unknown]
  - Chronic kidney disease [Not Recovered/Not Resolved]

NARRATIVE: CASE EVENT DATE: 20140912
